FAERS Safety Report 12133538 (Version 1)
Quarter: 2016Q1

REPORT INFORMATION
  Report Type: Spontaneous
  Country: US (occurrence: US)
  Receive Date: 20160301
  Receipt Date: 20160301
  Transmission Date: 20160526
  Serious: No
  Sender: FDA-Public Use
  Company Number: US-ALEMBIC PHARMACUETICALS LIMITED-2015SCAL000703

PATIENT

DRUGS (2)
  1. MEPROBAMATE. [Suspect]
     Active Substance: MEPROBAMATE
     Indication: NEURALGIA
     Dosage: UNK
  2. NIMODIPINE. [Concomitant]
     Active Substance: NIMODIPINE
     Indication: PRODUCT USED FOR UNKNOWN INDICATION
     Dosage: 30 MG, UNK

REACTIONS (2)
  - Drug ineffective for unapproved indication [Unknown]
  - Product substitution issue [Unknown]
